FAERS Safety Report 7161729-8 (Version None)
Quarter: 2010Q4

REPORT INFORMATION
  Report Type: 
  Country: None (occurrence: None)
  Receive Date: 20101215
  Receipt Date: 20101202
  Transmission Date: 20110411
  Serious: Yes (Life-Threatening, Hospitalization, Other)
  Sender: FDA-Public Use
  Company Number: AU-ELI_LILLY_AND_COMPANY-AU201011002501

PATIENT

DRUGS (3)
  1. CYMBALTA [Suspect]
     Indication: DEPRESSIVE SYMPTOM
  2. EFFEXOR XR [Concomitant]
     Route: 064
  3. SEROQUEL [Concomitant]
     Route: 064

REACTIONS (4)
  - DRUG EXPOSURE DURING PREGNANCY [None]
  - DRUG EXPOSURE VIA BREAST MILK [None]
  - MECHANICAL VENTILATION [None]
  - PREMATURE BABY [None]
